FAERS Safety Report 5482461-2 (Version None)
Quarter: 2007Q4

REPORT INFORMATION
  Report Type: 
  Country: None (occurrence: None)
  Receive Date: 20071011
  Receipt Date: 20071005
  Transmission Date: 20080405
  Serious: Yes (Hospitalization)
  Sender: FDA-Public Use
  Company Number: JP-ASTRAZENECA-2007AP05777

PATIENT
  Age: 25706 Day
  Sex: Female
  Weight: 54 kg

DRUGS (7)
  1. OMEPRAL [Suspect]
     Indication: HELICOBACTER INFECTION
     Route: 048
     Dates: start: 20070626, end: 20070719
  2. PLETAL [Suspect]
     Indication: HYPERTENSION
     Route: 048
     Dates: start: 20070215, end: 20070719
  3. ATELEC [Suspect]
     Indication: HYPERTENSION
     Route: 048
     Dates: start: 20070517, end: 20070719
  4. BONALON [Suspect]
     Indication: OSTEOPOROSIS
     Route: 048
     Dates: start: 20070625, end: 20070719
  5. LANSOPRAZOLE [Suspect]
     Indication: HELICOBACTER INFECTION
     Dosage: COMBINED DRUG
     Route: 048
     Dates: start: 20070626, end: 20070702
  6. AMOXICILLIN [Suspect]
     Indication: HELICOBACTER INFECTION
     Dosage: COMBINED DRUG
     Route: 048
     Dates: start: 20070626, end: 20070702
  7. CLARITHROMYCIN [Suspect]
     Indication: HELICOBACTER INFECTION
     Dosage: COMBINED DRUG
     Route: 048
     Dates: start: 20070626, end: 20070702

REACTIONS (3)
  - HELICOBACTER INFECTION [None]
  - OSTEOPOROSIS [None]
  - STEVENS-JOHNSON SYNDROME [None]
